FAERS Safety Report 10888648 (Version 1)
Quarter: 2015Q1

REPORT INFORMATION
  Report Type: Spontaneous
  Country: FR (occurrence: FR)
  Receive Date: 20150305
  Receipt Date: 20150305
  Transmission Date: 20150721
  Serious: Yes (Other)
  Sender: FDA-Public Use
  Company Number: FR-GLAXOSMITHKLINE-FR2015GSK027292

PATIENT
  Age: 42 Year
  Sex: Female

DRUGS (1)
  1. LAMICTAL [Suspect]
     Active Substance: LAMOTRIGINE
     Indication: OVERDOSE

REACTIONS (5)
  - Dyspnoea [Unknown]
  - Neurological decompensation [Unknown]
  - Dysphonia [Unknown]
  - Overdose [Unknown]
  - Coma [Recovered/Resolved]
